FAERS Safety Report 5279791-6 (Version None)
Quarter: 2007Q1

REPORT INFORMATION
  Report Type: 
  Country: None (occurrence: None)
  Receive Date: 20061220
  Receipt Date: 20060920
  Transmission Date: 20070707
  Serious: Yes (Hospitalization)
  Sender: FDA-Public Use
  Company Number: 255603

PATIENT
  Age: 52 Year
  Sex: Male
  Weight: 120.2 kg

DRUGS (10)
  1. NOVOLOG MIX 70/30 [Suspect]
     Indication: INSULIN-REQUIRING TYPE II DIABETES MELLITUS
     Dosage: 175 IU, QD, SUBCUTANEOUS
     Route: 058
     Dates: start: 20040101, end: 20060430
  2. NOVOLOG MIX 70/30 [Suspect]
  3. METFORMIN HCL [Concomitant]
  4. RISPERDAL [Concomitant]
  5. PRAVACHOL [Concomitant]
  6. LISINOPRIL [Concomitant]
  7. ZETIA [Concomitant]
  8. ASPIRIN [Concomitant]
  9. DARVOCET [Concomitant]
  10. OXYGEN (OXYGEN) [Concomitant]

REACTIONS (1)
  - DIABETIC KETOACIDOSIS [None]
